FAERS Safety Report 18434072 (Version 1)
Quarter: 2020Q4

REPORT INFORMATION
  Report Type: Spontaneous
  Country: NO (occurrence: NO)
  Receive Date: 20201027
  Receipt Date: 20201027
  Transmission Date: 20210114
  Serious: Yes (Life-Threatening, Hospitalization)
  Sender: FDA-Public Use
  Company Number: NO-FERRINGPH-2020FE07324

PATIENT
  Age: 78 Year
  Sex: Female
  Weight: 74 kg

DRUGS (1)
  1. PICOPREP [Suspect]
     Active Substance: ANHYDROUS CITRIC ACID\MAGNESIUM OXIDE\SODIUM PICOSULFATE
     Indication: BOWEL PREPARATION
     Dosage: ONE DOSE IN THE MORNING AND ONE IN THE EVENING 12 HRS APART
     Route: 065
     Dates: start: 20200907, end: 20200908

REACTIONS (4)
  - Vomiting [Recovered/Resolved]
  - Coma [Recovered/Resolved]
  - Syncope [Recovered/Resolved]
  - Muscle spasms [Recovered/Resolved]

NARRATIVE: CASE EVENT DATE: 20200908
